FAERS Safety Report 5097749-7 (Version None)
Quarter: 2006Q3

REPORT INFORMATION
  Report Type: 
  Country: None (occurrence: None)
  Receive Date: 20060905
  Receipt Date: 20060822
  Transmission Date: 20061208
  Serious: Yes (Hospitalization)
  Sender: FDA-Public Use
  Company Number: B0432671A

PATIENT
  Age: 43 Year
  Sex: Male

DRUGS (7)
  1. ZOVIRAX [Suspect]
     Dosage: ORAL
     Route: 048
     Dates: start: 20030101
  2. ZOVIRAX [Suspect]
     Dates: start: 20030101
  3. VALACICLOVIR HYDROCHLORID [Concomitant]
  4. PREDNISOLONE [Concomitant]
  5. ZIDOVUDINE [Concomitant]
  6. LAMIVUDINE [Concomitant]
  7. LOPINAVIR + RITONAVIR [Concomitant]

REACTIONS (13)
  - CONDITION AGGRAVATED [None]
  - DEAFNESS UNILATERAL [None]
  - DRUG INEFFECTIVE [None]
  - DYSPHAGIA [None]
  - DYSPHONIA [None]
  - ERYTHEMA [None]
  - FACIAL PALSY [None]
  - HIV TEST POSITIVE [None]
  - PALATAL DISORDER [None]
  - POLYNEUROPATHY [None]
  - RASH PUSTULAR [None]
  - SKIN DISORDER [None]
  - VARICELLA ZOSTER VIRUS SEROLOGY POSITIVE [None]
